FAERS Safety Report 9610549 (Version 2)
Quarter: 2013Q4

REPORT INFORMATION
  Report Type: Spontaneous
  Country: US (occurrence: US)
  Receive Date: 20131009
  Receipt Date: 20131009
  Transmission Date: 20140711
  Serious: No
  Sender: FDA-Public Use
  Company Number: US-PURDUE-USA-2012-0096602

PATIENT
  Age: 93 Year
  Sex: Female

DRUGS (1)
  1. BUTRANS [Suspect]
     Indication: PAIN IN EXTREMITY
     Dosage: 5 MCG, 1/WEEK
     Route: 062
     Dates: start: 20121109, end: 20121127

REACTIONS (3)
  - Dementia [Recovered/Resolved]
  - Tearfulness [Recovered/Resolved]
  - Pain [Recovered/Resolved]
